FAERS Safety Report 5530225-3 (Version None)
Quarter: 2007Q4

REPORT INFORMATION
  Report Type: 
  Country: None (occurrence: None)
  Receive Date: 20071127
  Receipt Date: 20071112
  Transmission Date: 20080405
  Serious: Yes (Other)
  Sender: FDA-Public Use
  Company Number: 2007S1011873

PATIENT
  Age: 29 Year
  Sex: Male

DRUGS (4)
  1. CETIRIZINE HCL [Suspect]
     Indication: DRUG USE FOR UNKNOWN INDICATION
  2. SALBUTAMOL (SALBUTAMOL) [Suspect]
  3. CHAMPIX /05703001/ (VARENICLINE) [Suspect]
     Dosage: 1 MG;TWICE A DAY;ORAL
     Route: 048
  4. COZAAR [Suspect]

REACTIONS (1)
  - CONVULSION [None]
